FAERS Safety Report 5303036-1 (Version None)
Quarter: 2007Q2

REPORT INFORMATION
  Report Type: 
  Country: None (occurrence: None)
  Receive Date: 20070420
  Receipt Date: 20070412
  Transmission Date: 20071010
  Serious: Yes (Other)
  Sender: FDA-Public Use
  Company Number: JP-AVENTIS-200711031JP

PATIENT
  Age: 14 Year
  Sex: Female
  Weight: 28 kg

DRUGS (2)
  1. LASIX [Suspect]
     Indication: PERICARDIAL EFFUSION
  2. ALBUMIN (HUMAN) [Suspect]
     Indication: HYPOALBUMINAEMIA

REACTIONS (6)
  - ALANINE AMINOTRANSFERASE INCREASED [None]
  - ASPARTATE AMINOTRANSFERASE INCREASED [None]
  - CARDIOVASCULAR DISORDER [None]
  - CONDITION AGGRAVATED [None]
  - CYTOLYTIC HEPATITIS [None]
  - HEPATOCELLULAR DAMAGE [None]
